FAERS Safety Report 6463884-1 (Version None)
Quarter: 2009Q4

REPORT INFORMATION
  Report Type: 
  Country: None (occurrence: None)
  Receive Date: 20091201
  Receipt Date: 20091120
  Transmission Date: 20100525
  Serious: Yes (Other)
  Sender: FDA-Public Use
  Company Number: CA-ROCHE-670330

PATIENT
  Age: 6 Year
  Sex: Male
  Weight: 21.3 kg

DRUGS (1)
  1. TAMIFLU [Suspect]
     Indication: INFLUENZA
     Route: 048
     Dates: start: 20091113, end: 20091118

REACTIONS (2)
  - AGGRESSION [None]
  - MYDRIASIS [None]
